FAERS Safety Report 22019401 (Version 2)
Quarter: 2023Q2

REPORT INFORMATION
  Report Type: Report from Study
  Country: US (occurrence: US)
  Receive Date: 20230222
  Receipt Date: 20230403
  Transmission Date: 20230721
  Serious: Yes (Hospitalization)
  Sender: FDA-Public Use
  Company Number: US-BAUSCH-BL-2023-003122

PATIENT
  Age: 54 Year
  Sex: Female

DRUGS (1)
  1. XIFAXAN [Suspect]
     Active Substance: RIFAXIMIN
     Indication: Hepatic function abnormal
     Route: 048
     Dates: end: 202212

REACTIONS (6)
  - Hospitalisation [Recovered/Resolved]
  - Escherichia infection [Unknown]
  - Femur fracture [Unknown]
  - Product use issue [Unknown]
  - Cough [Unknown]
  - Diarrhoea [Unknown]

NARRATIVE: CASE EVENT DATE: 20221201
